FAERS Safety Report 15715096 (Version 2)
Quarter: 2019Q1

REPORT INFORMATION
  Report Type: Spontaneous
  Country: FR (occurrence: FR)
  Receive Date: 20181212
  Receipt Date: 20190104
  Transmission Date: 20190417
  Serious: Yes (Hospitalization)
  Sender: FDA-Public Use
  Company Number: FR-BAYER-2018-224699

PATIENT
  Age: 74 Year
  Sex: Male

DRUGS (2)
  1. STIVARGA [Suspect]
     Active Substance: REGORAFENIB
     Indication: COLORECTAL CANCER
     Dosage: UNK
  2. STIVARGA [Suspect]
     Active Substance: REGORAFENIB
     Indication: COLORECTAL CANCER
     Dosage: 80 MG, OM
     Route: 048
     Dates: start: 201811

REACTIONS (5)
  - Urinary retention [Recovered/Resolved]
  - Haemorrhoids [Recovered/Resolved]
  - Off label use [None]
  - Pain [Recovered/Resolved]
  - Haemorrhage [Recovered/Resolved]
